FAERS Safety Report 8076350-7 (Version None)
Quarter: 2012Q1

REPORT INFORMATION
  Report Type: 
  Country: None (occurrence: None)
  Receive Date: 20120127
  Receipt Date: 20110819
  Transmission Date: 20120608
  Serious: Yes (Other)
  Sender: FDA-Public Use
  Company Number: US-VIIV HEALTHCARE LIMITED-A0941719A

PATIENT
  Age: 31 Year
  Sex: Male

DRUGS (3)
  1. CALTRATE [Concomitant]
  2. M.V.I. [Concomitant]
  3. COMBIVIR [Suspect]
     Indication: HIV INFECTION
     Route: 048
     Dates: start: 20110718, end: 20110818

REACTIONS (1)
  - ANAEMIA [None]
